FAERS Safety Report 6098363-7 (Version None)
Quarter: 2009Q1

REPORT INFORMATION
  Report Type: 
  Country: None (occurrence: None)
  Receive Date: 20090302
  Receipt Date: 20090220
  Transmission Date: 20090719
  Serious: Yes (Disabling)
  Sender: FDA-Public Use
  Company Number: FR-AMGEN-US335613

PATIENT
  Sex: Female

DRUGS (3)
  1. ENBREL [Suspect]
     Indication: RHEUMATOID ARTHRITIS
     Route: 058
     Dates: start: 20030101, end: 20081001
  2. CORTANCYL [Concomitant]
     Dosage: UNKNOWN
     Route: 065
  3. DI-ANTALVIC [Concomitant]
     Dosage: UNKNOWN
     Route: 065

REACTIONS (2)
  - BRONCHIAL HYPERREACTIVITY [None]
  - PULMONARY FIBROSIS [None]
